FAERS Safety Report 7418153-X (Version None)
Quarter: 2011Q2

REPORT INFORMATION
  Report Type: 
  Country: None (occurrence: None)
  Receive Date: 20110415
  Receipt Date: 20110401
  Transmission Date: 20111010
  Serious: Yes (Other)
  Sender: FDA-Public Use
  Company Number: IT-WATSON-2011-05121

PATIENT
  Age: 45 Year
  Sex: Female

DRUGS (1)
  1. KETOPROFEN [Suspect]
     Indication: TENSION HEADACHE
     Dosage: 80 MG, BID

REACTIONS (1)
  - HEPATIC STEATOSIS [None]
